FAERS Safety Report 8613448-6 (Version None)
Quarter: 2012Q3

REPORT INFORMATION
  Report Type: 
  Country: None (occurrence: None)
  Receive Date: 20120822
  Receipt Date: 20120816
  Transmission Date: 20120928
  Serious: Yes (Hospitalization)
  Sender: FDA-Public Use
  Company Number: AU-AMGEN-AUSSP2012052484

PATIENT
  Age: 76 Year
  Sex: Male

DRUGS (5)
  1. CALCIUM CARBONATE [Concomitant]
  2. ZOLADEX [Concomitant]
  3. XGEVA [Suspect]
     Indication: PRODUCT USED FOR UNKNOWN INDICATION
     Dosage: 120 MG, QMO
  4. IRBESARTAN + HYDROCHLOROTHIAZIDE [Concomitant]
     Dosage: 300/12.5, UNKNOWN
  5. CHOLECALCIFEROL [Concomitant]

REACTIONS (5)
  - ELECTROCARDIOGRAM QRS COMPLEX PROLONGED [None]
  - NAUSEA [None]
  - LOSS OF CONSCIOUSNESS [None]
  - MUSCLE RIGIDITY [None]
  - HYPOCALCAEMIA [None]
